FAERS Safety Report 15710200 (Version 1)
Quarter: 2018Q4

REPORT INFORMATION
  Report Type: Spontaneous
  Country: US (occurrence: US)
  Receive Date: 20181211
  Receipt Date: 20181211
  Transmission Date: 20190205
  Serious: No
  Sender: FDA-Public Use
  Company Number: US-INCYTE CORPORATION-2018IN012421

PATIENT

DRUGS (1)
  1. JAKAFI [Suspect]
     Active Substance: RUXOLITINIB
     Indication: GRAFT VERSUS HOST DISEASE
     Dosage: 10 MG, QD
     Route: 048
     Dates: start: 20181024

REACTIONS (6)
  - Arthralgia [Unknown]
  - Off label use [Unknown]
  - Hypersomnia [Unknown]
  - Inappropriate schedule of product administration [Unknown]
  - Urinary incontinence [Unknown]
  - Pain in extremity [Unknown]
